FAERS Safety Report 8085129-1 (Version None)
Quarter: 2012Q1

REPORT INFORMATION
  Report Type: 
  Country: None (occurrence: None)
  Receive Date: 20120128
  Receipt Date: 20110311
  Transmission Date: 20120608
  Serious: No
  Sender: FDA-Public Use
  Company Number: US-ABBOTT-11P-163-0711332-00

PATIENT
  Sex: Male
  Weight: 134.84 kg

DRUGS (7)
  1. SIMVASTATIN [Concomitant]
     Indication: BLOOD CHOLESTEROL INCREASED
  2. METHOTREXATE [Concomitant]
     Indication: PSORIASIS
  3. COZAAR [Concomitant]
     Indication: HYPERTENSION
  4. HUMIRA [Suspect]
     Indication: PSORIASIS
     Dates: start: 20100901
  5. FOLIC ACID [Concomitant]
     Indication: VITAMIN SUPPLEMENTATION
  6. ASPIRIN [Concomitant]
     Indication: PROPHYLAXIS
  7. CHLORTHALIDONE [Concomitant]
     Indication: FLUID RETENTION

REACTIONS (4)
  - PSORIASIS [None]
  - RASH MACULAR [None]
  - RASH [None]
  - ERYTHEMA [None]
